FAERS Safety Report 5370665-9 (Version None)
Quarter: 2007Q2

REPORT INFORMATION
  Report Type: 
  Country: None (occurrence: None)
  Receive Date: 20070618
  Receipt Date: 20061005
  Transmission Date: 20071010
  Serious: Yes (Other)
  Sender: FDA-Public Use
  Company Number: PHEH2006US06621

PATIENT
  Age: 65 Year
  Sex: Male

DRUGS (4)
  1. GLEEVEC [Suspect]
     Indication: CHRONIC MYELOID LEUKAEMIA
     Dosage: 400 MG, QD, ORAL; 600 MG, QD, ORAL; 500 MG, QOD, ORAL; 600 MG, QOD, ORAL
     Route: 048
     Dates: start: 20040524, end: 20050101
  2. GLEEVEC [Suspect]
     Indication: CHRONIC MYELOID LEUKAEMIA
     Dosage: 400 MG, QD, ORAL; 600 MG, QD, ORAL; 500 MG, QOD, ORAL; 600 MG, QOD, ORAL
     Route: 048
     Dates: start: 20050101, end: 20060518
  3. GLEEVEC [Suspect]
     Indication: CHRONIC MYELOID LEUKAEMIA
     Dosage: 400 MG, QD, ORAL; 600 MG, QD, ORAL; 500 MG, QOD, ORAL; 600 MG, QOD, ORAL
     Route: 048
     Dates: start: 20060518
  4. DOXAZOSIN (DOXAZOSIN) [Concomitant]

REACTIONS (3)
  - ANAEMIA [None]
  - GASTROINTESTINAL HAEMORRHAGE [None]
  - HAEMOGLOBIN DECREASED [None]
